FAERS Safety Report 23810511 (Version 1)
Quarter: 2024Q2

REPORT INFORMATION
  Report Type: Report from Study
  Country: US (occurrence: US)
  Receive Date: 20240502
  Receipt Date: 20240502
  Transmission Date: 20240716
  Serious: Yes (Hospitalization, Other)
  Sender: FDA-Public Use
  Company Number: US-ABBVIE-5618424

PATIENT
  Age: 88 Year
  Sex: Female

DRUGS (1)
  1. SKYRIZI [Suspect]
     Active Substance: RISANKIZUMAB-RZAA
     Indication: Psoriasis
     Route: 058
     Dates: start: 20230227

REACTIONS (12)
  - Influenza [Recovered/Resolved]
  - Pneumonia [Recovered/Resolved]
  - Muscle atrophy [Recovering/Resolving]
  - Cardiac disorder [Unknown]
  - Vertigo [Not Recovered/Not Resolved]
  - Blindness unilateral [Unknown]
  - Ear disorder [Not Recovered/Not Resolved]
  - Oxygen saturation decreased [Unknown]
  - Visual impairment [Unknown]
  - Cerebrovascular accident [Unknown]
  - Hypoacusis [Unknown]
  - Atrial fibrillation [Unknown]

NARRATIVE: CASE EVENT DATE: 20231101
